FAERS Safety Report 5246185-9 (Version None)
Quarter: 2007Q1

REPORT INFORMATION
  Report Type: 
  Country: None (occurrence: None)
  Receive Date: 20070220
  Receipt Date: 20061225
  Transmission Date: 20070707
  Serious: Yes (Death, Hospitalization)
  Sender: FDA-Public Use
  Company Number: 2007SP002367

PATIENT
  Age: 49 Year
  Sex: Female

DRUGS (32)
  1. BETAMETHASONE SODIUM PHOSPHATE [Suspect]
     Indication: BREAST CANCER
     Dosage: 8 MG; INDRP
     Dates: start: 20051203, end: 20051206
  2. BETAMETHASONE SODIUM PHOSPHATE [Suspect]
     Indication: METASTASES TO BONE
     Dosage: 8 MG; INDRP
     Dates: start: 20051203, end: 20051206
  3. BETAMETHASONE SODIUM PHOSPHATE [Suspect]
     Indication: METASTASES TO CENTRAL NERVOUS SYSTEM
     Dosage: 8 MG; INDRP
     Dates: start: 20051203, end: 20051206
  4. BETAMETHASONE SODIUM PHOSPHATE [Suspect]
     Indication: METASTASES TO LIVER
     Dosage: 8 MG; INDRP
     Dates: start: 20051203, end: 20051206
  5. BETAMETHASONE SODIUM PHOSPHATE [Suspect]
     Indication: METASTASES TO LYMPH NODES
     Dosage: 8 MG; INDRP
     Dates: start: 20051203, end: 20051206
  6. BETAMETHASONE SODIUM PHOSPHATE [Suspect]
     Indication: METASTASES TO SKIN
     Dosage: 8 MG; INDRP
     Dates: start: 20051203, end: 20051206
  7. BETAMETHASONE [Suspect]
     Indication: BREAST CANCER
     Dosage: 2 MG; ;PO
     Route: 048
     Dates: start: 20051207, end: 20060217
  8. BETAMETHASONE [Suspect]
     Indication: METASTASES TO BONE
     Dosage: 2 MG; ;PO
     Route: 048
     Dates: start: 20051207, end: 20060217
  9. BETAMETHASONE [Suspect]
     Indication: METASTASES TO CENTRAL NERVOUS SYSTEM
     Dosage: 2 MG; ;PO
     Route: 048
     Dates: start: 20051207, end: 20060217
  10. BETAMETHASONE [Suspect]
     Indication: METASTASES TO LIVER
     Dosage: 2 MG; ;PO
     Route: 048
     Dates: start: 20051207, end: 20060217
  11. BETAMETHASONE [Suspect]
     Indication: METASTASES TO LYMPH NODES
     Dosage: 2 MG; ;PO
     Route: 048
     Dates: start: 20051207, end: 20060217
  12. BETAMETHASONE [Suspect]
     Indication: METASTASES TO SKIN
     Dosage: 2 MG; ;PO
     Route: 048
     Dates: start: 20051207, end: 20060217
  13. OXYCONTIN [Concomitant]
  14. NOVAMIN [Concomitant]
  15. FLOMOX [Concomitant]
  16. HYPEN [Concomitant]
  17. DRAMAMINE [Concomitant]
  18. HALOPERIDOL [Concomitant]
  19. MAGNESIUM OXIDE [Concomitant]
  20. MERCAZOLE [Concomitant]
  21. AMLODIPINE [Concomitant]
  22. HYSRON-H [Concomitant]
  23. SULPERAZON [Concomitant]
  24. LASIX [Concomitant]
  25. SOLDACTONE [Concomitant]
  26. GASTER [Concomitant]
  27. GASTER D [Concomitant]
  28. SOLITA-T NO. 3 [Concomitant]
  29. 10% SODIUM CHLORIDE [Concomitant]
  30. VEEN-D [Concomitant]
  31. XELODA [Concomitant]
  32. ARIMIDEX [Concomitant]

REACTIONS (5)
  - CONDITION AGGRAVATED [None]
  - DEHYDRATION [None]
  - HEPATIC FUNCTION ABNORMAL [None]
  - MALIGNANT PLEURAL EFFUSION [None]
  - NEOPLASM MALIGNANT [None]
